FAERS Safety Report 23777908 (Version 1)
Quarter: 2024Q2

REPORT INFORMATION
  Report Type: Spontaneous
  Country: US (occurrence: None)
  Receive Date: 20240423
  Receipt Date: 20240423
  Transmission Date: 20240716
  Serious: Yes (Disabling)
  Sender: FDA-Public Use
  Company Number: None

PATIENT
  Age: 53 Year
  Sex: Female
  Weight: 106.2 kg

DRUGS (7)
  1. CAPLYTA [Suspect]
     Active Substance: LUMATEPERONE
     Indication: Schizoaffective disorder bipolar type
     Dates: start: 20240403, end: 20240423
  2. CAPLYTA [Concomitant]
     Active Substance: LUMATEPERONE
  3. LAMICTAL [Concomitant]
     Active Substance: LAMOTRIGINE
  4. PROZAC [Concomitant]
     Active Substance: FLUOXETINE HYDROCHLORIDE
  5. viranins b6 [Concomitant]
  6. b12 [Concomitant]
  7. D [Concomitant]

REACTIONS (2)
  - Tardive dyskinesia [None]
  - Deformity [None]

NARRATIVE: CASE EVENT DATE: 20240423
